FAERS Safety Report 6414501-8 (Version None)
Quarter: 2009Q4

REPORT INFORMATION
  Report Type: 
  Country: None (occurrence: None)
  Receive Date: 20091026
  Receipt Date: 20091013
  Transmission Date: 20100525
  Serious: Yes (Other)
  Sender: FDA-Public Use
  Company Number: GB-ELI_LILLY_AND_COMPANY-GB200910002672

PATIENT
  Sex: Female

DRUGS (2)
  1. ZYPREXA [Suspect]
     Indication: SCHIZOPHRENIA
     Dosage: UNK, UNKNOWN
     Route: 065
     Dates: start: 20090710
  2. CLOZARIL [Concomitant]
     Indication: SCHIZOPHRENIA
     Dosage: UNK, UNKNOWN
     Route: 065
     Dates: start: 19991103, end: 20090707

REACTIONS (7)
  - ARTHRALGIA [None]
  - BODY TEMPERATURE DECREASED [None]
  - DYSARTHRIA [None]
  - HYPERHIDROSIS [None]
  - HYPOTENSION [None]
  - JOINT STIFFNESS [None]
  - NEUROLEPTIC MALIGNANT SYNDROME [None]
